FAERS Safety Report 23513544 (Version 2)
Quarter: 2024Q3

REPORT INFORMATION
  Report Type: Spontaneous
  Country: US (occurrence: US)
  Receive Date: 20240212
  Receipt Date: 20240930
  Transmission Date: 20241017
  Serious: No
  Sender: GLENMARK
  Company Number: US-GLENMARK PHARMACEUTICALS-2024GMK088162

PATIENT

DRUGS (1)
  1. ESTRADIOL [Suspect]
     Active Substance: ESTRADIOL
     Indication: Urinary tract infection
     Dosage: UNK, THRICE A WEEK (DURATION: APPROXIMATELY 7 MONTHS)
     Route: 067

REACTIONS (3)
  - Drug effective for unapproved indication [Unknown]
  - Manufacturing issue [Unknown]
  - Product packaging quantity issue [Unknown]
